FAERS Safety Report 10312714 (Version 2)
Quarter: 2014Q3

REPORT INFORMATION
  Report Type: Spontaneous
  Country: US (occurrence: US)
  Receive Date: 20140718
  Receipt Date: 20140718
  Transmission Date: 20150326
  Serious: Yes (Death, Hospitalization, Other)
  Sender: FDA-Public Use
  Company Number: PHEH2005US014217

PATIENT
  Age: 55 Year
  Sex: Male
  Weight: 84.7 kg

DRUGS (65)
  1. AREDIA [Suspect]
     Active Substance: PAMIDRONATE DISODIUM
     Indication: PLASMA CELL MYELOMA
     Dosage: 90 MG, QMO
     Route: 042
     Dates: start: 20010518, end: 20020610
  2. ALBUTEROL + IPRATROPIUM [Concomitant]
     Route: 055
     Dates: start: 20071212
  3. PROTONIX [Concomitant]
     Active Substance: PANTOPRAZOLE SODIUM
     Dosage: 40 MG, QD
  4. OXYGEN THERAPY [Concomitant]
     Active Substance: OXYGEN
     Route: 045
  5. AVODART [Concomitant]
     Active Substance: DUTASTERIDE
  6. IMIPENEM AND CILASTATIN [Concomitant]
     Active Substance: CILASTATIN SODIUM\IMIPENEM
  7. ATIVAN [Concomitant]
     Active Substance: LORAZEPAM
  8. VINCRISTINE + ADRIAMYCIN + DEXAMETHASONE [Concomitant]
     Indication: PLASMA CELL MYELOMA
  9. CELEBREX [Concomitant]
     Active Substance: CELECOXIB
  10. ADRIAMYCIN [Concomitant]
     Active Substance: DOXORUBICIN HYDROCHLORIDE
     Dates: start: 2001
  11. DECADRON [Concomitant]
     Active Substance: DEXAMETHASONE
     Dates: start: 2004
  12. CALCIUM [Concomitant]
     Active Substance: CALCIUM
  13. MULTI-VITAMINS VITAFIT [Concomitant]
  14. COUMADIN [Concomitant]
     Active Substance: WARFARIN SODIUM
     Indication: THROMBOSIS PROPHYLAXIS
  15. CHLORHEXIDINE [Concomitant]
     Active Substance: CHLORHEXIDINE
  16. FILGRASTIM [Concomitant]
     Active Substance: FILGRASTIM
  17. BENADRYL ^WARNER-LAMBERT^               /USA/ [Concomitant]
  18. CIPROFLOXACIN. [Concomitant]
     Active Substance: CIPROFLOXACIN
     Dosage: 750 MG, BID
  19. ZOMETA [Suspect]
     Active Substance: ZOLEDRONIC ACID
     Indication: PLASMA CELL MYELOMA
     Dosage: 4 MG, QMO
     Route: 042
     Dates: start: 20020610, end: 20041018
  20. AUGMENTIN [Concomitant]
     Active Substance: AMOXICILLIN\CLAVULANATE POTASSIUM
     Dosage: 875 MG, BID
     Dates: start: 20071213
  21. MULTIVITAMIN [Concomitant]
     Active Substance: VITAMINS
     Route: 048
  22. WARFARIN [Concomitant]
     Active Substance: WARFARIN
     Route: 048
  23. AVELOX [Concomitant]
     Active Substance: MOXIFLOXACIN HYDROCHLORIDE
     Dosage: 1 DF, QD
     Route: 048
  24. ZANTAC [Concomitant]
     Active Substance: RANITIDINE HYDROCHLORIDE
  25. OTHER ANTINEOPLASTIC AGENTS [Concomitant]
     Active Substance: UNSPECIFIED INGREDIENT
     Indication: PLASMA CELL MYELOMA
  26. VINCRISTINE [Concomitant]
     Active Substance: VINCRISTINE
     Dates: start: 2001
  27. DECADRON [Concomitant]
     Active Substance: DEXAMETHASONE
     Dates: start: 2001
  28. REVLIMID [Concomitant]
     Active Substance: LENALIDOMIDE
     Dosage: 25 MG, QD
     Route: 048
  29. VELCADE [Concomitant]
     Active Substance: BORTEZOMIB
  30. ADVAIR HFA [Concomitant]
     Active Substance: FLUTICASONE PROPIONATE\SALMETEROL XINAFOATE
  31. FLUCONAZOLE. [Concomitant]
     Active Substance: FLUCONAZOLE
  32. TYLENOL [Concomitant]
     Active Substance: ACETAMINOPHEN
  33. TOVIAZ [Concomitant]
     Active Substance: FESOTERODINE FUMARATE
  34. INFLUENZA VACCINE [Concomitant]
     Active Substance: INFLUENZA VIRUS VACCINE
     Dates: start: 20041201
  35. FLOMAX [Concomitant]
     Active Substance: TAMSULOSIN HYDROCHLORIDE
     Dosage: 0.4 MG, QD
     Route: 048
     Dates: start: 20071213
  36. VESICARE [Concomitant]
     Active Substance: SOLIFENACIN SUCCINATE
     Dosage: 5 MG, QD
     Dates: start: 20071213
  37. ACYCLOVIR. [Concomitant]
     Active Substance: ACYCLOVIR
     Dosage: 1 DF, QD
     Route: 048
  38. WARFARIN SODIUM. [Concomitant]
     Active Substance: WARFARIN SODIUM
  39. HEPARIN [Concomitant]
     Active Substance: HEPARIN SODIUM
     Route: 042
  40. ZOFRAN [Concomitant]
     Active Substance: ONDANSETRON HYDROCHLORIDE
  41. EPINEPHRINE. [Concomitant]
     Active Substance: EPINEPHRINE
  42. NEUPOGEN [Concomitant]
     Active Substance: FILGRASTIM
     Dosage: 0.8 ML, Q12H
     Route: 065
  43. TRAMADOL [Concomitant]
     Active Substance: TRAMADOL
  44. THALIDOMIDE [Concomitant]
     Active Substance: THALIDOMIDE
  45. LEVOFLOXACIN [Concomitant]
     Active Substance: LEVOFLOXACIN
     Dosage: 500 MG,
     Route: 042
     Dates: start: 20071212
  46. METHYLPREDNISOLONE [Concomitant]
     Active Substance: METHYLPREDNISOLONE
     Dosage: 125 MG,
     Route: 042
     Dates: start: 20071212
  47. ZOVIRAX [Concomitant]
     Active Substance: ACYCLOVIR
     Dosage: 400 MG, QD
     Dates: start: 20071212
  48. ALLOPURINOL. [Concomitant]
     Active Substance: ALLOPURINOL
     Dosage: 100 MG, QD
     Route: 048
  49. MYLANTA                                 /USA/ [Concomitant]
  50. HYDROCORTISONE. [Concomitant]
     Active Substance: HYDROCORTISONE
  51. HEXADROL [Concomitant]
     Active Substance: DEXAMETHASONE
  52. OSCAL 500-D [Concomitant]
     Dosage: 1 DF, TID
     Route: 048
  53. PRILOSEC [Concomitant]
     Active Substance: OMEPRAZOLE MAGNESIUM
  54. OXYBUTYNIN [Concomitant]
     Active Substance: OXYBUTYNIN
  55. COMBIVENT [Concomitant]
     Active Substance: ALBUTEROL SULFATE\IPRATROPIUM BROMIDE
  56. PREVACID [Concomitant]
     Active Substance: LANSOPRAZOLE
  57. MOXIFLOXACIN [Concomitant]
     Active Substance: MOXIFLOXACIN
  58. NICODERM CQ [Concomitant]
     Active Substance: NICOTINE
  59. NORMAL SALINE [Concomitant]
     Active Substance: SODIUM CHLORIDE
  60. RANITIDIN ^ALIUD PHARMA^ [Concomitant]
  61. WELLBUTRIN [Concomitant]
     Active Substance: BUPROPION HYDROCHLORIDE
  62. ROBITUSSIN AC ^ROBINS^ [Concomitant]
     Dosage: 5 ML, PRN
     Dates: start: 20071214
  63. DIFLUCAN [Concomitant]
     Active Substance: FLUCONAZOLE
     Dosage: 1 DF, QD
     Route: 048
  64. COMPAZINE [Concomitant]
     Active Substance: PROCHLORPERAZINE MALEATE
  65. MELPHALAN [Concomitant]
     Active Substance: MELPHALAN

REACTIONS (166)
  - Chronic obstructive pulmonary disease [Recovering/Resolving]
  - Obstructive airways disorder [Unknown]
  - Gingival swelling [Unknown]
  - Pain [Unknown]
  - Deformity [Unknown]
  - Inflammation [Unknown]
  - Lymphadenopathy [Unknown]
  - Gingival recession [Unknown]
  - Bone swelling [Unknown]
  - Skin lesion [Unknown]
  - Haemorrhoids [Unknown]
  - Gastric polyps [Unknown]
  - Mitral valve incompetence [Unknown]
  - Skin papilloma [Unknown]
  - Mucosal inflammation [Unknown]
  - Blood pressure increased [Unknown]
  - Red cell distribution width increased [Unknown]
  - Eosinophil count increased [Unknown]
  - Coronary artery disease [Unknown]
  - Hernia [Unknown]
  - Hyalosis asteroid [Unknown]
  - Malignant neoplasm progression [Unknown]
  - Rectal haemorrhage [Unknown]
  - Tricuspid valve incompetence [Unknown]
  - Musculoskeletal pain [Unknown]
  - Spinal deformity [Unknown]
  - Polychromasia [Unknown]
  - Poikilocytosis [Unknown]
  - Red blood cell rouleaux formation present [Unknown]
  - Cardiac murmur [Unknown]
  - Wheezing [Unknown]
  - Bone disorder [Unknown]
  - Pain in jaw [Unknown]
  - Infection [Unknown]
  - Injury [Unknown]
  - Hyperplasia [Unknown]
  - Exposed bone in jaw [Unknown]
  - Bone loss [Unknown]
  - Bone fragmentation [Unknown]
  - Excessive granulation tissue [Unknown]
  - Neutropenia [Unknown]
  - Gastrooesophageal reflux disease [Unknown]
  - Herpes zoster [Unknown]
  - Ejection fraction decreased [Unknown]
  - Haematocrit decreased [Unknown]
  - Febrile neutropenia [Unknown]
  - Hypernatraemia [Unknown]
  - Visual acuity reduced [Unknown]
  - Patella fracture [Unknown]
  - Malnutrition [Unknown]
  - Urinary tract infection [Unknown]
  - Contusion [Unknown]
  - Prostatomegaly [Unknown]
  - Pharyngeal erythema [Unknown]
  - Alopecia [Unknown]
  - Death [Fatal]
  - Sinusitis [Unknown]
  - Tooth abscess [Unknown]
  - Exostosis [Unknown]
  - Candida infection [Unknown]
  - Pneumonia [Unknown]
  - Hypoaesthesia [Unknown]
  - Maculopathy [Unknown]
  - Hypogammaglobulinaemia [Unknown]
  - Oedema peripheral [Unknown]
  - Arthropathy [Unknown]
  - Necrosis [Unknown]
  - Laceration [Unknown]
  - Confusional state [Unknown]
  - Spinal compression fracture [Unknown]
  - Lung hyperinflation [Unknown]
  - Oral candidiasis [Unknown]
  - Primary sequestrum [Unknown]
  - Tenderness [Unknown]
  - Osteomyelitis [Unknown]
  - Tooth impacted [Unknown]
  - Diverticulum [Unknown]
  - Gastritis [Unknown]
  - Bone marrow failure [Unknown]
  - Thrombocytopenia [Recovering/Resolving]
  - Ear infection [Unknown]
  - Plasma cell myeloma [Unknown]
  - Anal haemorrhage [Unknown]
  - Hypokalaemia [Unknown]
  - Disturbance in attention [Unknown]
  - Oedema mucosal [Unknown]
  - Dyspnoea [Unknown]
  - Osteonecrosis of jaw [Recovering/Resolving]
  - Bone lesion [Unknown]
  - Anxiety [Unknown]
  - Sensitivity of teeth [Unknown]
  - Bundle branch block right [Unknown]
  - Chest pain [Unknown]
  - Cataract [Unknown]
  - Ligament rupture [Unknown]
  - Cardiac septal hypertrophy [Unknown]
  - Rash [Unknown]
  - Erectile dysfunction [Unknown]
  - Back pain [Unknown]
  - Spinal disorder [Unknown]
  - Aortic arteriosclerosis [Unknown]
  - Dehydration [Unknown]
  - Epistaxis [Unknown]
  - Mastoiditis [Unknown]
  - Intervertebral disc calcification [Unknown]
  - Kyphosis [Unknown]
  - Osteoarthritis [Unknown]
  - Tachycardia [Unknown]
  - Decreased appetite [Unknown]
  - Sleep apnoea syndrome [Unknown]
  - Bronchitis [Unknown]
  - Upper respiratory tract infection [Unknown]
  - Headache [Unknown]
  - Physical disability [Unknown]
  - Fistula [Unknown]
  - Pancytopenia [Unknown]
  - Pericardial effusion [Unknown]
  - Back disorder [Unknown]
  - Macular degeneration [Unknown]
  - Anisocytosis [Unknown]
  - Neutrophil toxic granulation present [Unknown]
  - Skin abrasion [Unknown]
  - Fatigue [Unknown]
  - Hypoxia [Unknown]
  - Sinus disorder [Unknown]
  - Osteoradionecrosis [Unknown]
  - Gingival ulceration [Unknown]
  - Emotional distress [Unknown]
  - Emphysema [Unknown]
  - Paraparesis [Unknown]
  - Spinal column stenosis [Recovering/Resolving]
  - Purulent discharge [Unknown]
  - Stomatitis [Unknown]
  - Plasma cell myeloma recurrent [Unknown]
  - Diarrhoea [Unknown]
  - Pyrexia [Unknown]
  - Sinus arrhythmia [Unknown]
  - Cough [Recovering/Resolving]
  - Cardiomyopathy [Unknown]
  - Orthostatic hypotension [Unknown]
  - Myocardial infarction [Unknown]
  - Astigmatism [Unknown]
  - Hypertension [Unknown]
  - Animal bite [Unknown]
  - Chills [Unknown]
  - Ear haemorrhage [Unknown]
  - Soft tissue inflammation [Unknown]
  - Bone pain [Unknown]
  - Ear discomfort [Unknown]
  - Hypotension [Unknown]
  - Discomfort [Unknown]
  - Cubital tunnel syndrome [Unknown]
  - Bacteraemia [Unknown]
  - Anaemia [Recovering/Resolving]
  - Polyneuropathy [Unknown]
  - Restless legs syndrome [Unknown]
  - Wound [Unknown]
  - Penile haemorrhage [Unknown]
  - Rib fracture [Recovered/Resolved]
  - Diaphragmatic disorder [Unknown]
  - Deep vein thrombosis [Unknown]
  - Listeriosis [Unknown]
  - Constipation [Unknown]
  - Arthralgia [Unknown]
  - Abdominal pain [Unknown]
  - Swelling face [Unknown]

NARRATIVE: CASE EVENT DATE: 20030702
